FAERS Safety Report 5264475-0 (Version None)
Quarter: 2007Q1

REPORT INFORMATION
  Report Type: 
  Country: None (occurrence: None)
  Receive Date: 20070314
  Receipt Date: 20070312
  Transmission Date: 20070707
  Serious: Yes (Hospitalization)
  Sender: FDA-Public Use
  Company Number: US-BAYER-200615027BCC

PATIENT
  Age: 41 Year
  Sex: Male
  Weight: 75 kg

DRUGS (2)
  1. ALKA SELTZER PLUS EFFERVESCENT COLD [Suspect]
     Indication: NASOPHARYNGITIS
     Dosage: TOTAL DAILY DOSE: 1000 MG  UNIT DOSE: 250 MG
     Route: 048
     Dates: start: 20040101, end: 20040101
  2. DILANTIN [Concomitant]

REACTIONS (1)
  - HAEMATEMESIS [None]
